FAERS Safety Report 8987366 (Version 2)
Quarter: 2013Q3

REPORT INFORMATION
  Report Type: Report from Study
  Country: DE (occurrence: DE)
  Receive Date: 20121226
  Receipt Date: 20130820
  Transmission Date: 20140515
  Serious: Yes (Hospitalization)
  Sender: FDA-Public Use
  Company Number: DE-ROCHE-1092831

PATIENT
  Age: 62 Year
  Sex: Female
  Weight: 59 kg

DRUGS (11)
  1. BEVACIZUMAB [Suspect]
     Indication: BREAST CANCER
     Dosage: LAST DOSE PRIOR TO EVENT: 26/SEP/2012
     Route: 042
     Dates: start: 20120706
  2. BEVACIZUMAB [Suspect]
     Dosage: LAST DOSE PRIOR TO EVENT: 20/NOV/2012
     Route: 042
     Dates: start: 20120706
  3. CARBOPLATIN [Suspect]
     Indication: BREAST CANCER
     Dosage: AUC 1.5, LAST DOSE PRIOR TO EVENT: 23/JUL/2012
     Route: 042
     Dates: start: 20120706
  4. CARBOPLATIN [Suspect]
     Dosage: DOSE: AUC 2, LAST DOSE PRIOR TO EVENT: 08/OCT/2012
     Route: 042
  5. CARBOPLATIN [Suspect]
     Dosage: 1.5 AUC
     Route: 042
     Dates: start: 20121003
  6. DOXORUBICIN [Suspect]
     Indication: BREAST CANCER
     Dosage: LAST DOSE PRIOR TO EVENT: 08/OCT/2012
     Route: 042
     Dates: start: 20120706
  7. DOXORUBICIN [Suspect]
     Route: 042
     Dates: start: 20121003
  8. DOXORUBICIN [Suspect]
     Route: 042
     Dates: start: 20120706
  9. PACLITAXEL [Suspect]
     Indication: BREAST CANCER
     Dosage: LAST DOSE PRIOR TO EVENT: 08/OCT/2012
     Route: 042
     Dates: start: 20120706
  10. PACLITAXEL [Suspect]
     Route: 042
     Dates: start: 20121003
  11. PACLITAXEL [Suspect]
     Dosage: MOST RECENT DOSE PRIOR TO SAE 20/NOV/2012
     Route: 042
     Dates: start: 20120706

REACTIONS (4)
  - Pyrexia [Recovered/Resolved]
  - Neutropenia [Recovered/Resolved]
  - Pyrexia [Recovered/Resolved]
  - Anaemia [Recovered/Resolved]
